FAERS Safety Report 8429689-7 (Version None)
Quarter: 2012Q2

REPORT INFORMATION
  Report Type: 
  Country: None (occurrence: None)
  Receive Date: 20120604
  Receipt Date: 20120521
  Transmission Date: 20120825
  Serious: Yes (Other)
  Sender: FDA-Public Use
  Company Number: 2011MA001754

PATIENT
  Age: 65 Year
  Sex: Female
  Weight: 73.9363 kg

DRUGS (65)
  1. METOCLOPRAMIDE [Suspect]
     Indication: IMPAIRED GASTRIC EMPTYING
     Dosage: 10 MG;AC + HS;PO
     Route: 048
     Dates: start: 20020811, end: 20100101
  2. METOCLOPRAMIDE [Suspect]
     Indication: GASTROOESOPHAGEAL REFLUX DISEASE
     Dosage: 10 MG;AC + HS;PO
     Route: 048
     Dates: start: 20020811, end: 20100101
  3. AMOXICILLIN [Concomitant]
  4. CEFACLOR [Concomitant]
  5. CLARINEX [Concomitant]
  6. CLORAZEPATE DIPOTASSIUM [Concomitant]
  7. CYPROHEPTADINE HCL [Concomitant]
  8. DIPHENOXYLATE HCL + ATROPINE SULFATE [Concomitant]
  9. EVOXAC [Concomitant]
  10. HYDROCODONE BITARTRATE AND ACETAMINOPHEN [Concomitant]
  11. LEVSIN PB [Concomitant]
  12. NASONEX [Concomitant]
  13. Q-TUSSIN DM [Concomitant]
  14. VENTOLIN [Concomitant]
  15. VI-Q-TUSS [Concomitant]
  16. ADVAIR DISKUS 100/50 [Concomitant]
  17. DIOVAN [Concomitant]
  18. LORATADINE [Concomitant]
  19. MUCINEX [Concomitant]
  20. PAXIL [Concomitant]
  21. ZANTAC [Concomitant]
  22. ZELNORM [Concomitant]
  23. BESYLATE [Concomitant]
  24. BENTYL [Concomitant]
  25. BIAXIN [Concomitant]
  26. DIFLUCAN [Concomitant]
  27. GLYBURIDE [Concomitant]
  28. HYOSCYAMINE SULFATE [Concomitant]
  29. M.V.I. [Concomitant]
  30. NEXIUM [Concomitant]
  31. NYSTATIN ORAL SUSPENSION [Concomitant]
  32. OXYBUTYNIN [Concomitant]
  33. PREMPRO [Concomitant]
  34. PROMETHAZINE [Concomitant]
  35. VAZOL-D [Concomitant]
  36. CEPHALEXIN [Concomitant]
  37. HYDROCHLOROTHIAZIDE [Concomitant]
  38. HYDROCODONE BITARTRATE/HOMATROPINE METHYBROMIDE [Concomitant]
  39. METRONIDAZOLE [Concomitant]
  40. TETRACYCLINE [Concomitant]
  41. ASCORBIC ACID [Concomitant]
  42. AMLODIPINE [Concomitant]
  43. DOXYCYCLINE [Concomitant]
  44. KLOR-CON [Concomitant]
  45. LISTERINE [Concomitant]
  46. PROTONIX [Concomitant]
  47. SINGULAIR [Concomitant]
  48. BACLOFEN [Concomitant]
  49. CIPROFLOXACIN HCL [Concomitant]
  50. COMBIVENT [Concomitant]
  51. LOTREL [Concomitant]
  52. NAPROXEN [Concomitant]
  53. OMEPRAZOLE [Concomitant]
  54. POTASSIUM ACETATE [Concomitant]
  55. VITAMIN D [Concomitant]
  56. ALBUTEROL [Concomitant]
  57. RESTASIS [Concomitant]
  58. TRAZODONE HCL [Concomitant]
  59. DEXAMETHASONE [Concomitant]
  60. GABAPENTIN [Concomitant]
  61. HYDRON CP [Concomitant]
  62. POTASSIUM CHLORIDE [Concomitant]
  63. NOVOLIN 70/30 [Concomitant]
  64. RANITIDINE [Concomitant]
  65. ZITHROMAX [Concomitant]

REACTIONS (29)
  - DIARRHOEA [None]
  - IRRITABLE BOWEL SYNDROME [None]
  - HYPOCALCAEMIA [None]
  - DIABETIC GASTROPARESIS [None]
  - POLYDIPSIA [None]
  - NEUROPATHY PERIPHERAL [None]
  - GASTRITIS [None]
  - TARDIVE DYSKINESIA [None]
  - PAIN IN EXTREMITY [None]
  - ABDOMINAL PAIN UPPER [None]
  - HYPOKALAEMIA [None]
  - TIC [None]
  - PARAESTHESIA [None]
  - DRY MOUTH [None]
  - ECONOMIC PROBLEM [None]
  - OESOPHAGOGASTRIC FUNDOPLASTY [None]
  - DIABETES MELLITUS [None]
  - GASTROOESOPHAGEAL REFLUX DISEASE [None]
  - FLATULENCE [None]
  - MUSCLE SPASMS [None]
  - EMOTIONAL DISORDER [None]
  - STRESS [None]
  - HYPOAESTHESIA [None]
  - SJOGREN'S SYNDROME [None]
  - INJURY [None]
  - HYPERTENSION [None]
  - EUSTACHIAN TUBE DYSFUNCTION [None]
  - UPPER RESPIRATORY TRACT INFECTION [None]
  - DYSPNOEA [None]
